FAERS Safety Report 8585613 (Version 3)
Quarter: 2014Q4

REPORT INFORMATION
  Report Type: Spontaneous
  Country: US (occurrence: US)
  Receive Date: 20120530
  Receipt Date: 20141210
  Transmission Date: 20150529
  Serious: No
  Sender: FDA-Public Use
  Company Number: US-GLAXOSMITHKLINE-A0931181A

PATIENT
  Age: 48 Year
  Sex: Male
  Weight: 71.8 kg

DRUGS (7)
  1. FLOLAN [Suspect]
     Active Substance: EPOPROSTENOL SODIUM
     Dosage: 48 NG/KG/MIN
  2. SIMVASTATIN TABLET [Concomitant]
  3. MULTIVITAMIN CAPSULE [Concomitant]
  4. DIGOXIN TABLET [Concomitant]
  5. LETAIRIS [Concomitant]
     Active Substance: AMBRISENTAN
  6. FLOLAN [Suspect]
     Active Substance: EPOPROSTENOL SODIUM
     Indication: PULMONARY ARTERIAL HYPERTENSION
     Dosage: 40 UNK, CO
     Route: 065
     Dates: start: 20090127
  7. ASPIRIN TABLET [Concomitant]

REACTIONS (5)
  - Pallor [Recovering/Resolving]
  - Device infusion issue [Recovered/Resolved]
  - Temporomandibular joint syndrome [Not Recovered/Not Resolved]
  - Dyspnoea [Recovering/Resolving]
  - Diplopia [Not Recovered/Not Resolved]

NARRATIVE: CASE EVENT DATE: 20110603
